FAERS Safety Report 4319855-4 (Version None)
Quarter: 2004Q1

REPORT INFORMATION
  Report Type: 
  Country: None (occurrence: None)
  Receive Date: 20040316
  Receipt Date: 20040304
  Transmission Date: 20041129
  Serious: Yes (Death, Hospitalization)
  Sender: FDA-Public Use
  Company Number: US068769

PATIENT
  Age: 75 Year
  Sex: Female

DRUGS (7)
  1. DARBEPOETIN ALFA [Suspect]
     Indication: ANAEMIA OF MALIGNANT DISEASE
     Dosage: 9 MCG/KG, 1 IN 3 WEEKS, SC
     Route: 058
     Dates: start: 20031001, end: 20040209
  2. HEPARIN-FRACTION [Concomitant]
  3. RITUXIMAB [Concomitant]
  4. PREDNISONE [Concomitant]
  5. CYCLOPHOSPHAMIDE [Concomitant]
  6. VINCRISTINE SULFATE [Concomitant]
  7. DOXORUBICIN HYDROCHLORIDE [Concomitant]

REACTIONS (17)
  - ANAEMIA [None]
  - ATRIAL FIBRILLATION [None]
  - BEDRIDDEN [None]
  - CARDIAC FAILURE CONGESTIVE [None]
  - CARDIO-RESPIRATORY ARREST [None]
  - COMA [None]
  - DEHYDRATION [None]
  - DEPRESSION [None]
  - ELECTROLYTE IMBALANCE [None]
  - FAILURE TO THRIVE [None]
  - FEBRILE NEUTROPENIA [None]
  - NAUSEA [None]
  - PERFORMANCE STATUS DECREASED [None]
  - PULMONARY EMBOLISM [None]
  - RESPIRATORY ALKALOSIS [None]
  - SUDDEN CARDIAC DEATH [None]
  - VOMITING [None]
